FAERS Safety Report 8726972 (Version 6)
Quarter: 2013Q4

REPORT INFORMATION
  Report Type: Report from Study
  Country: US (occurrence: US)
  Receive Date: 20120816
  Receipt Date: 20131226
  Transmission Date: 20140711
  Serious: Yes (Hospitalization, Other)
  Sender: FDA-Public Use
  Company Number: US-ELI_LILLY_AND_COMPANY-US201208001884

PATIENT
  Sex: Female

DRUGS (11)
  1. TERIPARATIDE [Suspect]
     Indication: SENILE OSTEOPOROSIS
     Dosage: 20 UG, QD
     Route: 065
  2. TERIPARATIDE [Suspect]
     Dosage: 20 UG, QD
     Route: 065
     Dates: end: 20120311
  3. TERIPARATIDE [Suspect]
     Dosage: 20 UG, QD
     Route: 065
     Dates: start: 2012
  4. METHOTREXATE [Concomitant]
     Indication: RHEUMATOID ARTHRITIS
     Dosage: 2.5 MG, WEEKLY (1/W)
  5. FOLIC ACID [Concomitant]
     Indication: PRODUCT USED FOR UNKNOWN INDICATION
     Dosage: 1.25 MG, QD
     Route: 065
  6. GLUCOSAMINE [Concomitant]
     Indication: PRODUCT USED FOR UNKNOWN INDICATION
     Dosage: 1500 DF, UNKNOWN
     Route: 065
  7. MSM [Concomitant]
     Indication: PRODUCT USED FOR UNKNOWN INDICATION
     Dosage: 1500 DF, UNKNOWN
     Route: 065
  8. CALCIUM [Concomitant]
     Indication: PRODUCT USED FOR UNKNOWN INDICATION
     Dosage: 1200 DF, BID
     Route: 065
  9. VITAMIN B COMPLEX                  /00003501/ [Concomitant]
     Indication: PRODUCT USED FOR UNKNOWN INDICATION
     Route: 065
  10. FISH OIL [Concomitant]
     Indication: PRODUCT USED FOR UNKNOWN INDICATION
     Dosage: 1000 MG, QD
     Route: 065
  11. VITAMIN D [Concomitant]
     Indication: PRODUCT USED FOR UNKNOWN INDICATION
     Route: 065

REACTIONS (5)
  - Meningitis [Unknown]
  - Brain oedema [Recovered/Resolved]
  - Subdural haematoma [Recovered/Resolved]
  - Central nervous system lesion [Recovered/Resolved]
  - Bone loss [Unknown]
